FAERS Safety Report 9455796 (Version 1)
Quarter: 2013Q3

REPORT INFORMATION
  Report Type: Spontaneous
  Country: BR (occurrence: BR)
  Receive Date: 20130813
  Receipt Date: 20130813
  Transmission Date: 20140515
  Serious: Yes (Hospitalization)
  Sender: FDA-Public Use
  Company Number: BR-SANOFI-AVENTIS-2013SA079552

PATIENT
  Sex: Female

DRUGS (4)
  1. LANTUS SOLOSTAR [Suspect]
     Indication: TYPE 2 DIABETES MELLITUS
     Route: 058
     Dates: start: 2012
  2. HUMALOG [Concomitant]
     Indication: TYPE 2 DIABETES MELLITUS
     Route: 058
  3. PURAN T4 [Concomitant]
     Indication: HYPOTHYROIDISM
     Route: 048
  4. SOLOSTAR [Concomitant]
     Indication: DEVICE THERAPY
     Dates: start: 2012

REACTIONS (2)
  - Foot fracture [Recovering/Resolving]
  - Paraesthesia [Unknown]
